FAERS Safety Report 18101269 (Version 1)
Quarter: 2020Q3

REPORT INFORMATION
  Report Type: Spontaneous
  Country: SE (occurrence: SE)
  Receive Date: 20200801
  Receipt Date: 20200801
  Transmission Date: 20201103
  Serious: Yes (Disabling)
  Sender: FDA-Public Use
  Company Number: SE-ABBVIE-20K-150-3505741-00

PATIENT
  Age: 23 Year
  Sex: Female
  Weight: 67 kg

DRUGS (1)
  1. HUMIRA [Suspect]
     Active Substance: ADALIMUMAB
     Indication: ANKYLOSING SPONDYLITIS
     Route: 058
     Dates: start: 20171205, end: 202007

REACTIONS (6)
  - Vestibulitis [Not Recovered/Not Resolved]
  - Tinea capitis [Unknown]
  - Genito-pelvic pain/penetration disorder [Not Recovered/Not Resolved]
  - Vulvovaginal dryness [Not Recovered/Not Resolved]
  - Genital discomfort [Not Recovered/Not Resolved]
  - Genital candidiasis [Unknown]

NARRATIVE: CASE EVENT DATE: 20180115
